FAERS Safety Report 12506731 (Version 2)
Quarter: 2016Q2

REPORT INFORMATION
  Report Type: Spontaneous
  Country: CN (occurrence: CN)
  Receive Date: 20160628
  Receipt Date: 20160630
  Transmission Date: 20160815
  Serious: Yes (Other)
  Sender: FDA-Public Use
  Company Number: CN-JNJFOC-20160616403

PATIENT

DRUGS (3)
  1. MOTRIN [Suspect]
     Active Substance: IBUPROFEN
     Indication: PROPHYLAXIS
     Dosage: INTERVAL OF 24 HOURS
     Route: 050
  2. MOTRIN [Suspect]
     Active Substance: IBUPROFEN
     Indication: PROPHYLAXIS
     Dosage: INTERVAL OF 24 HOURS
     Route: 050
  3. CUROSURF [Suspect]
     Active Substance: PORACTANT ALFA
     Indication: NEONATAL RESPIRATORY DISTRESS SYNDROME
     Dosage: 100-200 MG/KG
     Route: 039

REACTIONS (7)
  - Product use issue [Unknown]
  - Upper gastrointestinal haemorrhage [Unknown]
  - Oliguria [Unknown]
  - Feeding intolerance [Unknown]
  - Off label use [Unknown]
  - Renal impairment [Unknown]
  - Incorrect route of drug administration [Unknown]
